FAERS Safety Report 4665864-5 (Version None)
Quarter: 2005Q2

REPORT INFORMATION
  Report Type: 
  Country: None (occurrence: None)
  Receive Date: 20050516
  Receipt Date: 20050516
  Transmission Date: 20051028
  Serious: Yes (Other)
  Sender: FDA-Public Use
  Company Number: None

PATIENT
  Sex: Male
  Weight: 75.45 kg

DRUGS (10)
  1. PACLITAXEL [Suspect]
     Indication: SQUAMOUS CELL CARCINOMA
     Dosage: 225 MG/M2 IV OVER 3 HOURS ON DAY 1 EVERY 21 DAYS X 2
     Route: 042
     Dates: start: 20050328
  2. CARBOPLATIN [Suspect]
     Dosage: 6 IV OVER 15-30 MIN ON DAY 1 EVERY 21 DAYS X 2
     Route: 042
  3. XRT [Suspect]
     Dosage: 60 GY OVER 6 WKS BEGINNING BETWEEN DAYS 43-50
  4. ADVAIR DISKUS 100/50 [Concomitant]
  5. COMBIVANT [Concomitant]
  6. DEXEMETHASONE [Concomitant]
  7. LASIX [Concomitant]
  8. LEXAPRO [Concomitant]
  9. WARFARIN SODIUM [Concomitant]
  10. PROCHLORPERAZINE [Concomitant]

REACTIONS (12)
  - ANAEMIA [None]
  - ATHEROSCLEROSIS [None]
  - CAROTID ARTERY STENOSIS [None]
  - CEREBRAL ATHEROSCLEROSIS [None]
  - CHRONIC OBSTRUCTIVE PULMONARY DISEASE [None]
  - LUNG NEOPLASM MALIGNANT [None]
  - NEUTROPENIA [None]
  - PERIPHERAL VASCULAR DISORDER [None]
  - PNEUMONIA KLEBSIELLA [None]
  - PNEUMONIA PNEUMOCOCCAL [None]
  - RESPIRATORY FAILURE [None]
  - SEPTIC SHOCK [None]
